FAERS Safety Report 8394098-6 (Version None)
Quarter: 2012Q2

REPORT INFORMATION
  Report Type: 
  Country: None (occurrence: None)
  Receive Date: 20120530
  Receipt Date: 20120521
  Transmission Date: 20120825
  Serious: Yes (Other)
  Sender: FDA-Public Use
  Company Number: DE-JNJFOC-20120307806

PATIENT
  Sex: Female
  Weight: 60 kg

DRUGS (5)
  1. PREDNISOLONE [Concomitant]
     Route: 048
  2. VERAPAMIL [Concomitant]
     Route: 048
  3. PANTOPRAZOLE [Concomitant]
     Route: 048
  4. STELARA [Suspect]
     Indication: PSORIASIS
     Route: 058
     Dates: start: 20100825, end: 20101201
  5. MICARDIS [Concomitant]
     Route: 048

REACTIONS (1)
  - ANAL ABSCESS [None]
